FAERS Safety Report 4552130-1 (Version None)
Quarter: 2005Q1

REPORT INFORMATION
  Report Type: 
  Country: None (occurrence: None)
  Receive Date: 20050112
  Receipt Date: 20041223
  Transmission Date: 20050727
  Serious: Yes (Hospitalization)
  Sender: FDA-Public Use
  Company Number: USA041080875

PATIENT
  Sex: Female
  Weight: 82 kg

DRUGS (2)
  1. STRATTERA [Suspect]
     Indication: ATTENTION DEFICIT/HYPERACTIVITY DISORDER
     Dosage: 100 MG DAY
  2. LEXAPRO (ESCITALOPRAM OXALATE0 [Concomitant]

REACTIONS (3)
  - DRUG INTERACTION [None]
  - INFECTION [None]
  - PSYCHOTIC DISORDER [None]
